FAERS Safety Report 8176409-X (Version None)
Quarter: 2012Q1

REPORT INFORMATION
  Report Type: 
  Country: None (occurrence: None)
  Receive Date: 20120301
  Receipt Date: 20120227
  Transmission Date: 20120608
  Serious: Yes (Other)
  Sender: FDA-Public Use
  Company Number: IE-ASTELLAS-2011EU006200

PATIENT
  Age: 35 Year
  Sex: Female

DRUGS (12)
  1. METHADONE HCL [Concomitant]
     Dosage: 70 ML, UID/QD
     Route: 065
  2. MIRTAZAPINE [Concomitant]
     Dosage: 15 MG, UID/QD
     Route: 065
  3. FLUANXOL [Concomitant]
     Dosage: 1 MG, UID/QD
     Route: 065
  4. LYRICA [Concomitant]
     Dosage: 30 MG, TID
     Route: 065
  5. PICOLAX [Concomitant]
     Dosage: UNK
     Route: 065
  6. AMITRIPTYLINE HCL [Concomitant]
     Dosage: 50 MG, UID/QD
     Route: 065
  7. MIRTAZAPINE [Concomitant]
     Dosage: 30 MG, UID/QD
     Route: 065
  8. CODALAX [Concomitant]
     Dosage: UNK
     Route: 065
  9. SOLIFENACIN SUCCINATE [Suspect]
     Indication: URGE INCONTINENCE
     Dosage: 5 MG, UID/QD
     Route: 048
     Dates: start: 20110726, end: 20110902
  10. PERINDOPRIL ERBUMINE [Concomitant]
     Dosage: 2.5 MG, UID/QD
     Route: 065
  11. LACTULOSE [Concomitant]
     Dosage: 6 ML, TID
     Route: 065
  12. BACLOFEN [Concomitant]
     Dosage: 30 MG, TID
     Route: 065

REACTIONS (2)
  - CONVULSION [None]
  - EPILEPSY [None]
